FAERS Safety Report 8312672-X (Version None)
Quarter: 2012Q2

REPORT INFORMATION
  Report Type: 
  Country: None (occurrence: None)
  Receive Date: 20120426
  Receipt Date: 20120414
  Transmission Date: 20120825
  Serious: Yes (Other)
  Sender: FDA-Public Use
  Company Number: DE-PAR PHARMACEUTICAL, INC-2012SCPR004333

PATIENT

DRUGS (3)
  1. DEXAMETHASONE [Suspect]
     Dosage: 1 MG, THRICE DAILY
     Route: 065
  2. BEVACIZUMAB [Concomitant]
     Indication: RADIATION NECROSIS
     Dosage: 7.5MG/KG B.W. EVERY OTHER WEEK
     Route: 065
  3. DEXAMETHASONE [Suspect]
     Indication: RADIATION NECROSIS
     Dosage: 4 MG, THRICE DAILY
     Route: 065

REACTIONS (2)
  - CUSHING'S SYNDROME [None]
  - SKIN ULCER [None]
